FAERS Safety Report 7225907-1 (Version None)
Quarter: 2011Q1

REPORT INFORMATION
  Report Type: 
  Country: None (occurrence: None)
  Receive Date: 20110113
  Receipt Date: 20110104
  Transmission Date: 20110831
  Serious: Yes (Hospitalization)
  Sender: FDA-Public Use
  Company Number: US-ASTRAZENECA-2011SE00438

PATIENT
  Age: 76 Year
  Sex: Male

DRUGS (4)
  1. COREG [Concomitant]
  2. DIGOXIN [Concomitant]
  3. ATACAND [Suspect]
     Route: 048
  4. RAMIPRIL [Concomitant]

REACTIONS (1)
  - GASTRECTOMY [None]
